FAERS Safety Report 7358977-0 (Version None)
Quarter: 2011Q1

REPORT INFORMATION
  Report Type: 
  Country: None (occurrence: None)
  Receive Date: 20110317
  Receipt Date: 20100921
  Transmission Date: 20110831
  Serious: Yes (Hospitalization)
  Sender: FDA-Public Use
  Company Number: US-BAYER-201016104NA

PATIENT
  Sex: Female
  Weight: 108.84 kg

DRUGS (10)
  1. IBUPROFEN [Concomitant]
     Dosage: UNK
     Dates: start: 20000101, end: 20070101
  2. YAZ [Suspect]
     Indication: ACNE
  3. YAZ [Suspect]
     Indication: PREMENSTRUAL SYNDROME
  4. PERCOCET [Concomitant]
     Indication: PAIN
  5. YASMIN [Suspect]
     Indication: ACNE
     Dosage: UNK
  6. YASMIN [Suspect]
     Indication: PREMENSTRUAL SYNDROME
  7. ESTROGENIC SUBSTANCE [Concomitant]
     Dosage: 1.25 MG, UNK
     Dates: start: 20010101
  8. YASMIN [Suspect]
     Indication: ORAL CONTRACEPTION
  9. VIVELLE [Concomitant]
     Dosage: UNK
     Dates: start: 20060501
  10. LORA TAB [Concomitant]
     Dosage: 5 MG, UNK

REACTIONS (10)
  - PELVIC PAIN [None]
  - PELVIC ADHESIONS [None]
  - STRESS URINARY INCONTINENCE [None]
  - DYSMENORRHOEA [None]
  - CHOLECYSTITIS CHRONIC [None]
  - DYSPAREUNIA [None]
  - CHOLECYSTECTOMY [None]
  - CHOLELITHIASIS [None]
  - HYSTERECTOMY [None]
  - ENDOMETRIOSIS [None]
